FAERS Safety Report 13932261 (Version 8)
Quarter: 2018Q1

REPORT INFORMATION
  Report Type: Report from Study
  Country: JP (occurrence: JP)
  Receive Date: 20170904
  Receipt Date: 20180103
  Transmission Date: 20180508
  Serious: Yes (Hospitalization)
  Sender: FDA-Public Use
  Company Number: JP-ROCHE-1972767

PATIENT
  Age: 65 Year
  Sex: Male
  Weight: 69.6 kg

DRUGS (17)
  1. PEMETREXED. [Suspect]
     Active Substance: PEMETREXED
     Indication: NON-SMALL CELL LUNG CANCER STAGE IV
     Dosage: MOST RECENT DOSE PRIOR TO EVENT ONSET ON 07/JUL/2017 (900 MG)?500 MG/M2 PEMETREXED ON DAY 1 Q3W FOR
     Route: 042
     Dates: start: 20161212
  2. HYDROXOCOBALAMIN ACETATE. [Concomitant]
     Active Substance: HYDROXOCOBALAMIN ACETATE
     Dosage: INDICATION: ANTICANCER AGENT SIDE EFFECT PROPHYLAXIS
     Route: 065
     Dates: start: 20161130, end: 20170707
  3. DOMPERIDONE [Concomitant]
     Active Substance: DOMPERIDONE
     Dosage: INDICATION: ANTICANCER AGENT SIDE EFFECT PROPHYLAXIS
     Route: 065
     Dates: start: 20161212, end: 20170803
  4. PREGABALIN. [Concomitant]
     Active Substance: PREGABALIN
     Indication: NEUROPATHY PERIPHERAL
     Route: 065
     Dates: start: 20170609, end: 20170728
  5. ATEZOLIZUMAB. [Suspect]
     Active Substance: ATEZOLIZUMAB
     Indication: NON-SMALL CELL LUNG CANCER STAGE IV
     Dosage: MOST RECENT DOSE PRIOR TO EVENT ONSET ON 07/JUL/2017
     Route: 042
     Dates: start: 20161212
  6. DIMEMORFAN PHOSPHATE [Concomitant]
     Active Substance: DIMEMORFAN PHOSPHATE
     Route: 065
     Dates: start: 20161208
  7. AMLODIPINE BESILATE [Concomitant]
     Active Substance: AMLODIPINE BESYLATE
     Indication: HYPERTENSION
     Route: 065
     Dates: start: 20170808
  8. APREPITANT. [Concomitant]
     Active Substance: APREPITANT
     Dosage: INDICATION: ANTICANCER AGENT SIDE EFFECT PROPHYLAXIS
     Route: 065
     Dates: start: 20161212
  9. ZOPICLONE [Concomitant]
     Active Substance: ZOPICLONE
     Indication: INSOMNIA
     Route: 065
     Dates: start: 20161221, end: 20170803
  10. ESOMEPRAZOLE MAGNESIUM. [Concomitant]
     Active Substance: ESOMEPRAZOLE MAGNESIUM
     Indication: GASTRITIS PROPHYLAXIS
     Route: 065
     Dates: start: 20161212, end: 20170803
  11. GRANISETRON HYDROCHLORIDE. [Concomitant]
     Active Substance: GRANISETRON HYDROCHLORIDE
     Dosage: INDICATION: ANTICANCER AGENT SIDE EFFECT PROPHYLAXIS
     Route: 065
     Dates: start: 20170512, end: 20170707
  12. LANSOPRAZOLE. [Concomitant]
     Active Substance: LANSOPRAZOLE
     Indication: GASTRITIS PROPHYLAXIS
     Route: 065
     Dates: start: 20170808
  13. CISPLATIN. [Suspect]
     Active Substance: CISPLATIN
     Indication: NON-SMALL CELL LUNG CANCER STAGE IV
     Dosage: MOST RECENT DOSE PRIOR TO EVENT ONSET ON 14/APR/2017 (135 MG)?75 MG/M2 CISPLATIN ON DAY 1 Q3W FOR 4
     Route: 042
     Dates: start: 20161212
  14. PALONOSETRON HYDROCHLORIDE. [Concomitant]
     Active Substance: PALONOSETRON HYDROCHLORIDE
     Dosage: INDICATION: ANTICANCER AGENT SIDE EFFECT PROPHYLAXIS
     Route: 065
     Dates: start: 20161212
  15. MAGNESIUM OXIDE. [Concomitant]
     Active Substance: MAGNESIUM OXIDE
     Indication: CONSTIPATION
     Route: 065
     Dates: start: 20161215, end: 20170803
  16. IRBESARTAN. [Concomitant]
     Active Substance: IRBESARTAN
     Indication: HYPERTENSION
     Route: 065
     Dates: start: 20170607, end: 20170803
  17. SENNOSIDE [Concomitant]
     Active Substance: SENNOSIDES
     Indication: CONSTIPATION
     Route: 065
     Dates: start: 20161221, end: 20170803

REACTIONS (1)
  - Tubulointerstitial nephritis [Recovering/Resolving]

NARRATIVE: CASE EVENT DATE: 20170706
